FAERS Safety Report 10181497 (Version 1)
Quarter: 2014Q2

REPORT INFORMATION
  Report Type: Spontaneous
  Country: US (occurrence: US)
  Receive Date: 20140519
  Receipt Date: 20140519
  Transmission Date: 20141212
  Serious: Yes (Hospitalization)
  Sender: FDA-Public Use
  Company Number: US-GLAXOSMITHKLINE-A1072992A

PATIENT
  Age: 66 Year
  Sex: Male

DRUGS (2)
  1. ADVAIR [Suspect]
     Indication: CHRONIC OBSTRUCTIVE PULMONARY DISEASE
     Dosage: 1PUFF TWICE PER DAY
     Route: 055
  2. SPIRIVA [Concomitant]

REACTIONS (8)
  - Dyspnoea [Unknown]
  - Vision blurred [Unknown]
  - Bone disorder [Unknown]
  - Adverse event [Unknown]
  - Chronic obstructive pulmonary disease [Recovering/Resolving]
  - Off label use [Unknown]
  - Drug ineffective [Unknown]
  - Drug administration error [Unknown]
